FAERS Safety Report 19811952 (Version 1)
Quarter: 2021Q3

REPORT INFORMATION
  Report Type: Spontaneous
  Country: US (occurrence: US)
  Receive Date: 20210910
  Receipt Date: 20210910
  Transmission Date: 20211014
  Serious: Yes (Other)
  Sender: FDA-Public Use
  Company Number: US-SA-2021SA296867

PATIENT
  Age: 22 Year
  Sex: Female

DRUGS (2)
  1. ZANTAC [Suspect]
     Active Substance: RANITIDINE HYDROCHLORIDE
     Indication: HYPERCHLORHYDRIA
  2. ZANTAC [Suspect]
     Active Substance: RANITIDINE HYDROCHLORIDE
     Indication: DYSPEPSIA
     Dosage: FREQUENCY; OTHER
     Dates: start: 198301, end: 201201

REACTIONS (4)
  - Ulcer [Unknown]
  - Disease progression [Not Recovered/Not Resolved]
  - Gastric cancer [Unknown]
  - Ovarian cancer stage IV [Not Recovered/Not Resolved]

NARRATIVE: CASE EVENT DATE: 19800101
